FAERS Safety Report 20195105 (Version 1)
Quarter: 2021Q4

REPORT INFORMATION
  Report Type: Spontaneous
  Country: US (occurrence: US)
  Receive Date: 20211216
  Receipt Date: 20211216
  Transmission Date: 20220303
  Serious: Yes (Other)
  Sender: FDA-Public Use
  Company Number: US-JNJFOC-20211234667

PATIENT

DRUGS (1)
  1. REMICADE [Suspect]
     Active Substance: INFLIXIMAB
     Indication: Colitis ulcerative
     Route: 064

REACTIONS (3)
  - Bradycardia foetal [Unknown]
  - Premature baby [Unknown]
  - Foetal exposure during pregnancy [Recovered/Resolved]
